FAERS Safety Report 15620663 (Version 2)
Quarter: 2018Q4

REPORT INFORMATION
  Report Type: Spontaneous
  Country: US (occurrence: US)
  Receive Date: 20181115
  Receipt Date: 20181207
  Transmission Date: 20190205
  Serious: No
  Sender: FDA-Public Use
  Company Number: US-ASTRAZENECA-2018SF41063

PATIENT
  Age: 10 Year
  Sex: Male

DRUGS (1)
  1. PULMICORT FLEXHALER [Suspect]
     Active Substance: BUDESONIDE
     Route: 055

REACTIONS (5)
  - Device issue [Unknown]
  - Asthma [Unknown]
  - Incorrect dose administered [Unknown]
  - Product dose omission [Unknown]
  - Intentional device misuse [Unknown]
